FAERS Safety Report 6613561-9 (Version None)
Quarter: 2010Q1

REPORT INFORMATION
  Report Type: 
  Country: None (occurrence: None)
  Receive Date: 20100224
  Receipt Date: 20090520
  Transmission Date: 20100710
  Serious: Yes (Life-Threatening, Hospitalization, Disabling)
  Sender: FDA-Public Use
  Company Number: WAES 0905USA02885

PATIENT
  Age: 79 Year
  Sex: Male

DRUGS (3)
  1. ZOCOR [Suspect]
     Indication: HYPERCHOLESTEROLAEMIA
     Dosage: 40 MG/DAILY/PO
     Route: 048
     Dates: end: 20090515
  2. ACTOS [Concomitant]
  3. GLUCOVANCE [Concomitant]

REACTIONS (1)
  - RHABDOMYOLYSIS [None]
